FAERS Safety Report 7125421-8 (Version None)
Quarter: 2010Q4

REPORT INFORMATION
  Report Type: 
  Country: None (occurrence: None)
  Receive Date: 20101129
  Receipt Date: 20101116
  Transmission Date: 20110411
  Serious: Yes (Hospitalization, Other)
  Sender: FDA-Public Use
  Company Number: IT-ELI_LILLY_AND_COMPANY-IT201011004409

PATIENT
  Age: 65 Year
  Sex: Female

DRUGS (5)
  1. EFFIENT [Suspect]
     Indication: STENT PLACEMENT
     Dosage: 60 MG, LOADING DOSE
     Route: 065
  2. EFFIENT [Suspect]
     Dosage: 5 MG, DAILY (1/D)
     Route: 065
  3. CLOPIDOGREL [Concomitant]
     Indication: CARDIOVASCULAR DISORDER
     Dosage: UNK, UNKNOWN
     Route: 065
  4. MICARDIS [Concomitant]
     Dosage: UNK, UNKNOWN
     Route: 065
  5. ANTIHYPERTENSIVES [Concomitant]
     Indication: HYPERTENSION
     Dosage: UNK, UNKNOWN
     Route: 065

REACTIONS (2)
  - PALMAR ERYTHEMA [None]
  - SKIN EXFOLIATION [None]
